FAERS Safety Report 25592854 (Version 3)
Quarter: 2025Q4

REPORT INFORMATION
  Report Type: Spontaneous
  Country: US (occurrence: US)
  Receive Date: 20250722
  Receipt Date: 20251110
  Transmission Date: 20260118
  Serious: No
  Sender: SANOFI AVENTIS
  Company Number: US-SA-2025SA208155

PATIENT
  Age: 11 Year
  Sex: Female

DRUGS (2)
  1. DUPIXENT [Suspect]
     Active Substance: DUPILUMAB
     Indication: Dermatitis allergic
     Dosage: 400 MG, 1X
     Route: 058
     Dates: start: 202501, end: 202501
  2. DUPIXENT [Suspect]
     Active Substance: DUPILUMAB
     Indication: Eczema
     Dosage: 200 MG, QOW
     Route: 058
     Dates: start: 2025

REACTIONS (9)
  - Dry skin [Unknown]
  - Pruritus [Unknown]
  - Inflammation [Unknown]
  - Dermatitis allergic [Unknown]
  - Condition aggravated [Unknown]
  - Erythema [Unknown]
  - Rash [Unknown]
  - Eczema [Unknown]
  - Therapeutic response shortened [Unknown]

NARRATIVE: CASE EVENT DATE: 20250101
